FAERS Safety Report 4711498-3 (Version None)
Quarter: 2005Q3

REPORT INFORMATION
  Report Type: 
  Country: None (occurrence: None)
  Receive Date: 20050711
  Receipt Date: 20050629
  Transmission Date: 20060218
  Serious: Yes (Hospitalization)
  Sender: FDA-Public Use
  Company Number: PHO-2005-013

PATIENT
  Age: 55 Year
  Sex: Male

DRUGS (2)
  1. PHOTOFRIN [Suspect]
     Indication: NEOPLASM MALIGNANT
     Dosage: 2 MG/KG, I.V.; I INJECTION
     Route: 042
     Dates: start: 20050622, end: 20050622
  2. PHOTOFRIN [Suspect]
     Indication: NEOPLASM MALIGNANT
     Dosage: 2 MG/KG, I.V.; I INJECTION
     Route: 042
     Dates: start: 20050623, end: 20050623

REACTIONS (5)
  - BACTERIAL INFECTION [None]
  - COUGH [None]
  - CULTURE POSITIVE [None]
  - DIAPHRAGMATIC RUPTURE [None]
  - LIVER DISORDER [None]
